FAERS Safety Report 5391076-6 (Version None)
Quarter: 2007Q3

REPORT INFORMATION
  Report Type: 
  Country: None (occurrence: None)
  Receive Date: 20070719
  Receipt Date: 20070712
  Transmission Date: 20080115
  Serious: Yes (Hospitalization)
  Sender: FDA-Public Use
  Company Number: US-ELI_LILLY_AND_COMPANY-US200707003371

PATIENT
  Age: 55 Year
  Sex: Male
  Weight: 77.097 kg

DRUGS (5)
  1. ALIMTA [Suspect]
     Dosage: UNK, UNK
     Dates: start: 20070201
  2. FOLIC ACID [Concomitant]
     Indication: VITAMIN SUPPLEMENTATION
  3. VITAMIN B-12 [Concomitant]
     Indication: VITAMIN SUPPLEMENTATION
  4. ZOFRAN [Concomitant]
     Indication: ANTIEMETIC SUPPORTIVE CARE
  5. CARBOPLATIN [Concomitant]
     Indication: MESOTHELIOMA
     Dates: start: 20070201

REACTIONS (6)
  - APHASIA [None]
  - CHEST PAIN [None]
  - CONSTIPATION [None]
  - DYSPNOEA [None]
  - LOSS OF CONSCIOUSNESS [None]
  - NAUSEA [None]
